FAERS Safety Report 18789364 (Version 1)
Quarter: 2021Q1

REPORT INFORMATION
  Report Type: Spontaneous
  Country: US (occurrence: US)
  Receive Date: 20210126
  Receipt Date: 20210126
  Transmission Date: 20210419
  Serious: No
  Sender: FDA-Public Use
  Company Number: None

PATIENT
  Age: 60 Year
  Sex: Female
  Weight: 82.8 kg

DRUGS (7)
  1. CITALOPRAM [Concomitant]
     Active Substance: CITALOPRAM HYDROBROMIDE
  2. LISINOPRIL. [Concomitant]
     Active Substance: LISINOPRIL
  3. LAMOTRIGINE. [Concomitant]
     Active Substance: LAMOTRIGINE
  4. ATORVASTATIN [Concomitant]
     Active Substance: ATORVASTATIN
  5. REXULTI [Suspect]
     Active Substance: BREXPIPRAZOLE
     Indication: DEPRESSION
     Dosage: ?          QUANTITY:1 TABLET(S);?
     Route: 048
  6. ASPIRIN. [Concomitant]
     Active Substance: ASPIRIN
  7. NEXIUM [Concomitant]
     Active Substance: ESOMEPRAZOLE MAGNESIUM

REACTIONS (5)
  - Tongue disorder [None]
  - Aptyalism [None]
  - Dyskinesia [None]
  - Tremor [None]
  - Dry mouth [None]

NARRATIVE: CASE EVENT DATE: 20200915
